FAERS Safety Report 21933207 (Version 2)
Quarter: 2023Q1

REPORT INFORMATION
  Report Type: Spontaneous
  Country: JP (occurrence: JP)
  Receive Date: 20230131
  Receipt Date: 20230228
  Transmission Date: 20230417
  Serious: Yes (Other)
  Sender: FDA-Public Use
  Company Number: JP-002147023-NVSJ2023JP001861

PATIENT
  Age: 75 Year
  Sex: Male

DRUGS (1)
  1. BEOVU [Suspect]
     Active Substance: BROLUCIZUMAB-DBLL
     Indication: Age-related macular degeneration
     Dosage: 6 MG, LEFT EYE
     Route: 031
     Dates: start: 20221216

REACTIONS (4)
  - Iritis [Recovered/Resolved]
  - Visual acuity reduced [Unknown]
  - Vitreous floaters [Recovering/Resolving]
  - Vision blurred [Unknown]

NARRATIVE: CASE EVENT DATE: 20221228
